FAERS Safety Report 18176131 (Version 1)
Quarter: 2020Q3

REPORT INFORMATION
  Report Type: Spontaneous
  Country: US (occurrence: US)
  Receive Date: 20200820
  Receipt Date: 20200820
  Transmission Date: 20201103
  Serious: No
  Sender: FDA-Public Use
  Company Number: US-GLAXOSMITHKLINE-US2020158973

PATIENT
  Sex: Female

DRUGS (3)
  1. HYOSCINE HYDROBROMIDE [Suspect]
     Active Substance: SCOPOLAMINE HYDROBROMIDE
     Indication: PRODUCT USED FOR UNKNOWN INDICATION
     Dosage: UNK
  2. TRANSDERM SCOP [Suspect]
     Active Substance: SCOPOLAMINE
     Indication: PRODUCT USED FOR UNKNOWN INDICATION
     Dosage: UNK
  3. TRANSDERM SCOP [Suspect]
     Active Substance: SCOPOLAMINE
     Indication: PRODUCT USED FOR UNKNOWN INDICATION
     Dosage: UNK

REACTIONS (8)
  - Paranasal sinus discomfort [Unknown]
  - Therapeutic product effect incomplete [Unknown]
  - Dry throat [Unknown]
  - Dry mouth [Unknown]
  - Fatigue [Unknown]
  - Malaise [Unknown]
  - Wrong technique in product usage process [Unknown]
  - Oropharyngeal discomfort [Unknown]
